FAERS Safety Report 22277355 (Version 1)
Quarter: 2023Q2

REPORT INFORMATION
  Report Type: Spontaneous
  Country: US (occurrence: None)
  Receive Date: 20230503
  Receipt Date: 20230503
  Transmission Date: 20230722
  Serious: No
  Sender: FDA-Public Use
  Company Number: 2023A094605

PATIENT

DRUGS (1)
  1. IMFINZI [Suspect]
     Active Substance: DURVALUMAB
     Route: 042

REACTIONS (1)
  - Blood immunoglobulin G increased [Unknown]
